FAERS Safety Report 17214632 (Version 1)
Quarter: 2020Q1

REPORT INFORMATION
  Report Type: Spontaneous
  Country: US (occurrence: US)
  Receive Date: 20191228
  Receipt Date: 20191228
  Transmission Date: 20200409
  Serious: Yes (Hospitalization)
  Sender: FDA-Public Use
  Company Number: None

PATIENT
  Age: 57 Year
  Sex: Female

DRUGS (10)
  1. MAGNESIUM [Concomitant]
     Active Substance: MAGNESIUM
  2. PREDNISONE. [Concomitant]
     Active Substance: PREDNISONE
  3. METHOTREXATE. [Suspect]
     Active Substance: METHOTREXATE
     Indication: SKIN DISORDER
     Dosage: ?          OTHER FREQUENCY:6 TABLETS ONCE;?
     Route: 048
     Dates: start: 20190510, end: 20190729
  4. MULTI [Concomitant]
  5. PENTOXIFYLLINE. [Concomitant]
     Active Substance: PENTOXIFYLLINE
  6. LYCINE [Concomitant]
  7. CURCUMIN [Concomitant]
     Active Substance: CURCUMIN
  8. VIT C,B,D,E [Concomitant]
  9. TUMERIC [Concomitant]
     Active Substance: HERBALS\TURMERIC
  10. POSTASSIUM [Concomitant]

REACTIONS (5)
  - Skin exfoliation [None]
  - Pharyngitis [None]
  - Blister [None]
  - Pain [None]
  - Bacterial infection [None]

NARRATIVE: CASE EVENT DATE: 20190727
